FAERS Safety Report 12451099 (Version 2)
Quarter: 2017Q4

REPORT INFORMATION
  Report Type: Report from Study
  Country: JP (occurrence: JP)
  Receive Date: 20160609
  Receipt Date: 20171117
  Transmission Date: 20180320
  Serious: Yes (Life-Threatening, Hospitalization)
  Sender: FDA-Public Use
  Company Number: JP-ASTRAZENECA-2015SE56131

PATIENT
  Age: 26555 Day
  Sex: Female

DRUGS (15)
  1. ONGLYZA [Suspect]
     Active Substance: SAXAGLIPTIN HYDROCHLORIDE
     Indication: TYPE 2 DIABETES MELLITUS
     Route: 048
     Dates: start: 20141121, end: 20160729
  2. FOLIAMIN [Concomitant]
     Active Substance: FOLIC ACID
     Indication: RHEUMATOID ARTHRITIS
     Route: 048
  3. LOXONIN [Concomitant]
     Active Substance: LOXOPROFEN SODIUM
     Indication: RHEUMATOID ARTHRITIS
     Route: 062
  4. CELECOX [Concomitant]
     Active Substance: CELECOXIB
     Route: 048
  5. THYRADIN S [Concomitant]
     Active Substance: LEVOTHYROXINE SODIUM
     Indication: HYPOTHYROIDISM
     Route: 048
  6. IGURATIMOD [Concomitant]
     Active Substance: IGURATIMOD
     Indication: RHEUMATOID ARTHRITIS
     Route: 048
  7. GASTER [Concomitant]
     Active Substance: FAMOTIDINE
     Route: 048
  8. REBAMIPIDE [Concomitant]
     Active Substance: REBAMIPIDE
     Route: 048
  9. BROTIZOLAM [Concomitant]
     Active Substance: BROTIZOLAM
     Route: 048
  10. BASEN OD [Concomitant]
     Active Substance: VOGLIBOSE
     Indication: TYPE 2 DIABETES MELLITUS
     Route: 048
  11. ADALAT CC [Concomitant]
     Active Substance: NIFEDIPINE
     Indication: HYPERTENSION
     Route: 048
  12. RHEUMATREX [Concomitant]
     Active Substance: METHOTREXATE SODIUM
     Indication: RHEUMATOID ARTHRITIS
     Route: 048
  13. MAGMITT [Concomitant]
     Active Substance: MAGNESIUM OXIDE
     Route: 048
  14. LOXOPROFEN [Concomitant]
     Active Substance: LOXOPROFEN
     Route: 048
  15. MOHRUS [Concomitant]
     Active Substance: KETOPROFEN
     Route: 061

REACTIONS (4)
  - Insomnia [Recovered/Resolved]
  - Fracture [Recovering/Resolving]
  - Hepatocellular carcinoma [Not Recovered/Not Resolved]
  - Hepatocellular carcinoma [Recovering/Resolving]

NARRATIVE: CASE EVENT DATE: 20141221
